FAERS Safety Report 6419129-1 (Version None)
Quarter: 2009Q4

REPORT INFORMATION
  Report Type: 
  Country: None (occurrence: None)
  Receive Date: 20091029
  Receipt Date: 20091020
  Transmission Date: 20100525
  Serious: Yes (Hospitalization)
  Sender: FDA-Public Use
  Company Number: JP-ROCHE-659222

PATIENT
  Sex: Male
  Weight: 27 kg

DRUGS (4)
  1. ROCEPHIN [Suspect]
     Indication: SINUSITIS
     Dosage: ROUTE: INTRAVENOUS NOS
     Route: 042
     Dates: start: 20090831, end: 20090831
  2. ROCEPHIN [Suspect]
     Route: 042
     Dates: start: 20090901, end: 20090909
  3. SINGULAIR [Concomitant]
     Route: 048
     Dates: start: 20090908, end: 20090910
  4. KLARICID [Concomitant]
     Dosage: DRUG FORM: DRYSYRUP.
     Route: 048
     Dates: start: 20090908, end: 20090910

REACTIONS (1)
  - ERYTHEMA MULTIFORME [None]
